FAERS Safety Report 9925244 (Version 2)
Quarter: 2014Q1

REPORT INFORMATION
  Report Type: Spontaneous
  Country: GB (occurrence: GB)
  Receive Date: 20140226
  Receipt Date: 20140325
  Transmission Date: 20141002
  Serious: Yes (Other)
  Sender: FDA-Public Use
  Company Number: GB-PFIZER INC-2014051979

PATIENT
  Age: 82 Year
  Sex: Female

DRUGS (11)
  1. TOLTERODINE TARTRATE [Suspect]
     Dosage: 4 MG, 1X/DAY
     Route: 048
     Dates: end: 20140128
  2. ALENDRONATE [Concomitant]
     Dosage: UNK
  3. CALCICHEW-D3 [Concomitant]
     Dosage: UNK
  4. CODEINE PHOSPHATE [Concomitant]
     Dosage: UNK
  5. DIGOXIN [Concomitant]
  6. FERROUS FUMARATE [Concomitant]
     Dosage: UNK
  7. LEVOTHYROXINE [Concomitant]
  8. MOVICOL [Concomitant]
  9. OMEPRAZOLE [Concomitant]
  10. PARACETAMOL [Concomitant]
  11. WARFARIN [Concomitant]

REACTIONS (4)
  - Electrocardiogram QT prolonged [Recovered/Resolved]
  - Fall [Unknown]
  - Femur fracture [Unknown]
  - Haemoglobin decreased [Unknown]
